FAERS Safety Report 8242810-9 (Version None)
Quarter: 2012Q1

REPORT INFORMATION
  Report Type: 
  Country: None (occurrence: None)
  Receive Date: 20120329
  Receipt Date: 20120321
  Transmission Date: 20120608
  Serious: Yes (Other)
  Sender: FDA-Public Use
  Company Number: PHHY2012EG024686

PATIENT
  Age: 23 Year
  Sex: Male

DRUGS (1)
  1. AMOXICILLIN AND CLAVULANATE POTASSIUM [Suspect]
     Dosage: 1 G, BID
     Route: 048

REACTIONS (3)
  - ORAL DISORDER [None]
  - DRUG ERUPTION [None]
  - PRURITUS [None]
